FAERS Safety Report 12392008 (Version 3)
Quarter: 2016Q2

REPORT INFORMATION
  Report Type: Spontaneous
  Country: FR (occurrence: FR)
  Receive Date: 20160523
  Receipt Date: 20160629
  Transmission Date: 20160815
  Serious: Yes (Hospitalization)
  Sender: FDA-Public Use
  Company Number: FR-BEH-2016062729

PATIENT
  Age: 42 Year
  Sex: Female

DRUGS (12)
  1. BISOPROLOL (FUMARATE) [Concomitant]
     Dosage: LONG TERM, NAME OF MANUFACTURER NOT PROVIDED
     Route: 048
  2. CALCIUM AND VITAMIN D3 (CACIT VITAMIN D3) 1000 MG/880 IU [Concomitant]
     Dosage: START DATE: ??-???-2015
     Route: 048
  3. MABTHERA [Concomitant]
     Active Substance: RITUXIMAB
     Dosage: 1 G AT D1 AND 1 G AT D15
     Route: 065
     Dates: start: 20150223, end: 20150309
  4. LYSINE ACETYLSALICYLATE (KARDEGIC) 160 MG [Concomitant]
     Dosage: LONG-TERM
     Route: 048
  5. AZATHIOPRINE IMUREL 50 MG [Suspect]
     Active Substance: AZATHIOPRINE
     Indication: POLYMYOSITIS
     Dosage: SCORED TABLET
     Route: 048
     Dates: start: 20150611, end: 20150707
  6. BUMETADINE [Concomitant]
     Active Substance: BUMETANIDE
     Dosage: LONG TERM
     Route: 048
  7. FENOFIBRATE (LIPANTHYL) 160 MG [Concomitant]
     Dosage: LONG TERM, 1 DAILY IN THE EVENING
     Route: 048
  8. MICROENCAPSULATED POTASSIUM CHLORIDE (DIFFU K) [Concomitant]
     Dosage: LONG-TERM
     Route: 048
  9. COTRIMOXAZOLE (BACTRIM) [Concomitant]
     Dosage: FREQUENCY: 3 TIMES A WEEK AND 3 TIMES A DAY REPORTED [SIC!]
     Route: 048
     Dates: start: 20150225, end: 20160225
  10. PREDNISOLONE (CORTANCYL) [Concomitant]
     Dosage: LONG-TERM
     Route: 048
  11. PRIVIGEN [Suspect]
     Active Substance: HUMAN IMMUNOGLOBULIN G
     Indication: POLYMYOSITIS
     Dosage: START DATE: ??-JAN-2015, STOP DATE: ??SEP-2015, BATCH NO. UNKNOWN
     Route: 042
  12. PERINDOPRIL [Concomitant]
     Active Substance: PERINDOPRIL
     Dosage: LONG TERM, NAME OF MANUFACTURER NOT PROVIDED
     Route: 048

REACTIONS (12)
  - Hypotension [Recovered/Resolved]
  - Vomiting [Recovered/Resolved]
  - Diarrhoea [Recovered/Resolved]
  - Metabolic alkalosis [Recovered/Resolved]
  - Drug hypersensitivity [Recovered/Resolved]
  - Acute kidney injury [Recovered/Resolved with Sequelae]
  - Erythema [Recovered/Resolved]
  - Pyrexia [Recovered/Resolved]
  - Hyperthermia [Recovered/Resolved]
  - Cyanosis [Recovered/Resolved]
  - Orthostatic hypotension [Recovered/Resolved]
  - Anaemia [Recovered/Resolved]

NARRATIVE: CASE EVENT DATE: 20150707
